FAERS Safety Report 25368397 (Version 2)
Quarter: 2025Q3

REPORT INFORMATION
  Report Type: Spontaneous
  Country: EU (occurrence: EU)
  Receive Date: 20250528
  Receipt Date: 20250711
  Transmission Date: 20251020
  Serious: Yes (Hospitalization)
  Sender: TEVA
  Company Number: None

PATIENT
  Age: 48 Year
  Sex: Female
  Weight: 76 kg

DRUGS (9)
  1. AMLODIPINE\VALSARTAN [Suspect]
     Active Substance: AMLODIPINE\VALSARTAN
     Indication: Hypertension
     Dosage: LC;?AMLODIPINE/VALSARTAN TEVA SANTE 10 MG/160 MG
     Route: 048
  2. METFORMIN [Suspect]
     Active Substance: METFORMIN HYDROCHLORIDE
     Indication: Type 2 diabetes mellitus
     Dosage: 500MG 2X/DAY
     Route: 048
     Dates: start: 20250307
  3. METHOTREXATE SODIUM [Suspect]
     Active Substance: METHOTREXATE SODIUM
     Indication: Myositis
     Dosage: 15 MG/0.6 ML
     Route: 058
     Dates: start: 20240707, end: 20250501
  4. HYDROCORTISONE ACETATE [Suspect]
     Active Substance: HYDROCORTISONE ACETATE
     Indication: Myositis
     Route: 048
     Dates: start: 20250123, end: 20250301
  5. ESIDREX [Suspect]
     Active Substance: HYDROCHLOROTHIAZIDE
     Indication: Hypertension
     Dosage: LC
     Route: 048
  6. LYRICA [Suspect]
     Active Substance: PREGABALIN
     Indication: Pain
     Dosage: LC?100MG X3/DAY
     Route: 048
  7. MORPHINE SULFATE [Suspect]
     Active Substance: MORPHINE SULFATE
     Indication: Pain
     Route: 048
  8. SKENAN [Suspect]
     Active Substance: MORPHINE SULFATE
     Indication: Pain
     Dosage: LC; PROLONGED RELEASE MICROGRANULES IN CAPSULE?100MG 2X /DAY
     Route: 048
  9. SKENAN [Suspect]
     Active Substance: MORPHINE SULFATE
     Indication: Pain
     Dosage: LC; SKENAN L.P. PROLONGED RELEASE MICROGRANULES IN CAPSULE?60 MG 2X /DAY
     Route: 048

REACTIONS (2)
  - Pancreatitis acute [Recovering/Resolving]
  - Adrenal insufficiency [Recovered/Resolved]

NARRATIVE: CASE EVENT DATE: 20250501
